FAERS Safety Report 9834705 (Version 2)
Quarter: 2014Q1

REPORT INFORMATION
  Report Type: Spontaneous
  Country: US (occurrence: US)
  Receive Date: 20140122
  Receipt Date: 20140318
  Transmission Date: 20141002
  Serious: Yes (Hospitalization)
  Sender: FDA-Public Use
  Company Number: US-UCBSA-109003

PATIENT
  Age: 55 Year
  Sex: Female
  Weight: 64 kg

DRUGS (4)
  1. KEPPRA XR [Suspect]
     Indication: CONVULSION
     Dosage: 1000 MG (TWO TABLETS TWICE DAILY) + 500 MG (3 1/2 TABLETS TWICE DAILY)
     Route: 048
  2. DEPAKOTE [Concomitant]
     Indication: CONVULSION
     Dosage: 250, 1 TAB DAILY
  3. DEPAKOTE [Concomitant]
     Indication: CONVULSION
     Dosage: 500 (2 TABS TWICE DAILY)
     Route: 048
  4. VITAMIN [Concomitant]

REACTIONS (3)
  - Pyrexia [Recovered/Resolved]
  - Overdose [Not Recovered/Not Resolved]
  - Inappropriate schedule of drug administration [Not Recovered/Not Resolved]
